FAERS Safety Report 8560742-3 (Version None)
Quarter: 2012Q3

REPORT INFORMATION
  Report Type: 
  Country: None (occurrence: None)
  Receive Date: 20120802
  Receipt Date: 20120730
  Transmission Date: 20120928
  Serious: Yes (Death, Other)
  Sender: FDA-Public Use
  Company Number: PHHY2012BR065905

PATIENT

DRUGS (1)
  1. LOSARTAN POTASSIUM [Suspect]
     Dosage: 50 MG/DAY MATERNAL DOSE
     Route: 064

REACTIONS (10)
  - CRANIOFACIAL DYSOSTOSIS [None]
  - SKULL MALFORMATION [None]
  - EXTREMITY CONTRACTURE [None]
  - LOW BIRTH WEIGHT BABY [None]
  - PULMONARY HYPOPLASIA [None]
  - FOETAL EXPOSURE DURING PREGNANCY [None]
  - NEPHROPATHY [None]
  - THYMUS HYPOPLASIA [None]
  - RENAL APLASIA [None]
  - NEONATAL HYPOXIA [None]
